FAERS Safety Report 15490892 (Version 2)
Quarter: 2019Q1

REPORT INFORMATION
  Report Type: Report from Study
  Country: US (occurrence: US)
  Receive Date: 20181012
  Receipt Date: 20190201
  Transmission Date: 20190417
  Serious: No
  Sender: FDA-Public Use
  Company Number: US-IPSEN BIOPHARMACEUTICALS, INC.-2018-14961

PATIENT
  Sex: Male
  Weight: 36 kg

DRUGS (2)
  1. INCRELEX [Suspect]
     Active Substance: MECASERMIN
     Indication: HYPOPITUITARISM
     Dosage: 20 MG (0.5CC)
     Route: 030
     Dates: start: 20180821
  2. INCRELEX [Suspect]
     Active Substance: MECASERMIN
     Indication: OFF LABEL USE
     Dosage: REDUCED TO 30 UNITS

REACTIONS (3)
  - Product dose omission [Unknown]
  - Headache [Unknown]
  - Off label use [Unknown]
